FAERS Safety Report 8818797 (Version 1)
Quarter: 2012Q4

REPORT INFORMATION
  Report Type: 
  Country: US (occurrence: US)
  Receive Date: 20121001
  Receipt Date: 20121001
  Transmission Date: 20130627
  Serious: Yes (Death)
  Sender: FDA-Public Use
  Company Number: US-ROCHE-1129627

PATIENT
  Sex: Female

DRUGS (4)
  1. HERCEPTIN [Suspect]
     Indication: BREAST CANCER FEMALE
     Dosage: cycle 1
     Route: 042
     Dates: start: 20010403
  2. HERCEPTIN [Suspect]
     Route: 042
     Dates: start: 20010410
  3. HERCEPTIN [Suspect]
     Route: 042
     Dates: start: 20010419
  4. HERCEPTIN [Suspect]
     Route: 042
     Dates: start: 20010424

REACTIONS (4)
  - Death [Fatal]
  - Dyspnoea [Unknown]
  - Chest pain [Unknown]
  - Dizziness [Unknown]
